FAERS Safety Report 24098126 (Version 2)
Quarter: 2024Q3

REPORT INFORMATION
  Report Type: Spontaneous
  Country: GB (occurrence: GB)
  Receive Date: 20240716
  Receipt Date: 20240731
  Transmission Date: 20241017
  Serious: Yes (Hospitalization, Other)
  Sender: AMGEN
  Company Number: GB-MHRA-MIDB-d7dbe1a1-9ba7-4b83-a89a-01343b36aaf2

PATIENT
  Age: 37 Year
  Sex: Female

DRUGS (23)
  1. ADALIMUMAB [Suspect]
     Active Substance: ADALIMUMAB\ISOPROPYL ALCOHOL
     Indication: Product used for unknown indication
     Dosage: UNK
     Route: 065
  2. NEFOPAM [Concomitant]
     Active Substance: NEFOPAM
     Dosage: 60 MILLIGRAM/ 3 DAYS
     Dates: start: 20240125
  3. BUTYLSCOPOLAMINE BROMIDE [Concomitant]
     Active Substance: BUTYLSCOPOLAMINE BROMIDE
     Dosage: 10 MILLIGRAM/ ONE TO BE TAKEN FOUR TIMES A DAY - REPORTS HAS TDS - DOES GIVEN VIA PEJ
  4. FOLIC ACID [Concomitant]
     Active Substance: FOLIC ACID
     Dosage: 5 MILLILITER, QOD/ 2.5MG/5ML SUGAR FREE
     Dates: start: 20240114
  5. FOLIC ACID [Concomitant]
     Active Substance: FOLIC ACID
     Dosage: 2.5MG/5ML
     Dates: start: 20240124
  6. FOLIC ACID\IRON\MINERALS\VITAMINS [Concomitant]
     Active Substance: FOLIC ACID\IRON\MINERALS\VITAMINS
     Dosage: 1 DOSAGE FORM, QD
     Dates: start: 20240208
  7. ZINC SULFATE MONOHYDRATE [Concomitant]
     Active Substance: ZINC SULFATE MONOHYDRATE
     Dosage: 125 MILLIGRAM/ SUGAR FREE/ 3 DAYS
  8. ZINC SULFATE MONOHYDRATE [Concomitant]
     Active Substance: ZINC SULFATE MONOHYDRATE
     Dosage: 125 MILLIGRAM
     Dates: start: 20240208
  9. CLEEN [Concomitant]
     Dosage: 133 MILLILITER/ 133ML ENEMA (RECORDATI PHARMACEUTICALS LTD) AS DIRECTED - DOESN^T USE
     Dates: start: 20230929
  10. Bioxtra [Concomitant]
     Indication: Dry mouth
     Dosage: (R.I.S. PRODUCTS LTD) 1 APPLICATION PRN - DOESN^T USE
     Dates: start: 20230203
  11. PREDNISOLONE [Concomitant]
     Active Substance: PREDNISOLONE
     Dosage: 5MG SUPPOSITORIES INSERT ONE SUPPOSITORY INTO THE RECTUM AT TEATIME AS DIRECTED BY HOSPITAL - USES T
     Route: 054
     Dates: start: 20240219
  12. MIRTAZAPINE [Concomitant]
     Active Substance: MIRTAZAPINE
     Dosage: NIGHT
     Dates: start: 20240219
  13. ACETAMINOPHEN [Concomitant]
     Active Substance: ACETAMINOPHEN
     Dosage: 250MG/5ML ORAL SUSPENSION SUGAR FREETWO TO FOUR 5ML SPOONFULS EVERY 4 TO 6 HOURS WHEN NECESSARY. NO
     Dates: start: 20240219
  14. HYDROCORTISONE [Concomitant]
     Active Substance: HYDROCORTISONE\HYDROCORTISONE ACETATE
     Dosage: 10MG TABLETS ONE AND A HALF TABLETS TO BE TAKEN TWICE A DAY TAKES 20MG OM, 10MG LUNCH 10MG TEATIME U
     Dates: start: 20240208
  15. HYDROCORTISONE [Concomitant]
     Active Substance: HYDROCORTISONE\HYDROCORTISONE ACETATE
     Dosage: MORNING
     Dates: start: 20240208
  16. HYDROCORTISONE [Concomitant]
     Active Substance: HYDROCORTISONE\HYDROCORTISONE ACETATE
     Dosage: TEATIME
     Dates: start: 20240208
  17. HYDROCORTISONE [Concomitant]
     Active Substance: HYDROCORTISONE\HYDROCORTISONE ACETATE
     Dosage: LUNCH
  18. LANSOPRAZOLE [Concomitant]
     Active Substance: LANSOPRAZOLE
     Dosage: VIA ENTERAL FEEDING TUBE
     Dates: start: 20240208
  19. LOPERAMIDE [Concomitant]
     Active Substance: LOPERAMIDE
     Indication: Diarrhoea
     Dosage: 2 MILLIGRAM/ MAX 16MG IN 24 HOURS. - DOESN^T USE
     Dates: start: 20230921
  20. CHOLECALCIFEROL [Concomitant]
     Active Substance: CHOLECALCIFEROL
     Dosage: 10,000UNITS/ML ORAL DROPS SUGAR FREE TAKE 2ML (20,000UNITS) ONCE EVERY 4 WEEKS IN PLACE OF THE CAPSU
     Dates: start: 20240219
  21. CHOLECALCIFEROL [Concomitant]
     Active Substance: CHOLECALCIFEROL
     Dosage: 10,000UNITS/ML ORAL DROPS SUGAR FREETAKE 2ML (20,000UNITS) ONCE EVERY 4 WEEKS IN PLACE OF THE CAPSUL
     Dates: start: 20240219
  22. BUDESONIDE [Concomitant]
     Active Substance: BUDESONIDE
     Dosage: ONE DOSE TO BE INSERTED EACH NIGHT -} PT REFUSING WHILE IN HOSPITAL
     Route: 054
     Dates: start: 20240219
  23. FLUDROCORTISONE [Concomitant]
     Active Substance: FLUDROCORTISONE
     Dosage: HALF 100UG  IN THE MORNING
     Dates: start: 20240208

REACTIONS (1)
  - Cardiac failure congestive [Recovered/Resolved]
